FAERS Safety Report 7595434-0 (Version None)
Quarter: 2011Q3

REPORT INFORMATION
  Report Type: 
  Country: None (occurrence: None)
  Receive Date: 20110707
  Receipt Date: 20110628
  Transmission Date: 20111222
  Serious: Yes (Death)
  Sender: FDA-Public Use
  Company Number: DE-ROCHE-779492

PATIENT
  Sex: Female
  Weight: 66 kg

DRUGS (11)
  1. IRINOTECAN HYDROCHLORIDE [Suspect]
     Dosage: FORM: INFUSION, DATE OF LAST DOSE PRIOR TO SAE: 25 AUGUST 2010.
     Route: 042
     Dates: start: 20100825, end: 20100908
  2. FLUOROURACIL [Suspect]
     Dosage: FORM: INFUSION, DATE OF LAST DOSE PRIOR TO SAE: 25 AUGUST 2010.
     Route: 042
     Dates: start: 20100825, end: 20100908
  3. OXALIPLATIN [Suspect]
     Dosage: FORM: INFUSION, DATE OF LAST DOSE PRIOR TO SAE: 25 AUGUST 2010
     Route: 042
     Dates: start: 20100825, end: 20100908
  4. LEUCOVORIN CALCIUM [Suspect]
     Dosage: FORM: INFUSION. DATE OF LAST DOSE PRIOR TA SAE: 25 AUGUST 2010
     Route: 042
     Dates: start: 20100825, end: 20100908
  5. LEUCOVORIN CALCIUM [Suspect]
     Dosage: UNITS TAKEN FROM PROTOCOL.  LAST DOSE PRIOR TO SAE : 18 MAY 2011
     Route: 042
     Dates: start: 20110518
  6. AMPHOTERICIN B [Concomitant]
     Dosage: FREQUENCY: IF NECESSARY
     Dates: start: 20100825
  7. GRANISETRON [Concomitant]
     Dosage: FREQUENCY: IF NECESSARY
     Dates: start: 20100825
  8. FLUOROURACIL [Suspect]
     Dosage: UNITS TAKEN FROM PROTOCOL.  LAST DOSE PRIOR TO SAE : 20 MAY 2011
     Route: 042
     Dates: start: 20110518
  9. LOPERAMIDE [Concomitant]
     Dosage: FREQUENCY: IF NECESSARY
     Dates: start: 20100825
  10. BEVACIZUMAB [Suspect]
     Dosage: UNITS : TAKEN FROM PROTOCOL. LAST DOSE PRIOR TO SAE : 18 MAY 2011
     Route: 042
     Dates: start: 20110518
  11. BEVACIZUMAB [Suspect]
     Dosage: FORM: INFUSION. DATE OF LAST DOSE PRIOR TO SAE: 25 AUGUST 2010
     Route: 042
     Dates: start: 20100825, end: 20100908

REACTIONS (1)
  - ABSCESS [None]
